FAERS Safety Report 9265837 (Version 1)
Quarter: 2013Q2

REPORT INFORMATION
  Report Type: Spontaneous
  Country: US (occurrence: US)
  Receive Date: 20130501
  Receipt Date: 20130501
  Transmission Date: 20140414
  Serious: Yes (Other)
  Sender: FDA-Public Use
  Company Number: US-PFIZER INC-2013136043

PATIENT
  Age: 56 Year
  Sex: Female
  Weight: 70.3 kg

DRUGS (3)
  1. LYRICA [Suspect]
     Indication: NEUROPATHY PERIPHERAL
     Dosage: 75 MG, 2X/DAY
     Dates: start: 20130417, end: 20130425
  2. LYRICA [Suspect]
     Indication: PAIN IN EXTREMITY
  3. ALBUTEROL [Concomitant]
     Indication: ASTHMA
     Dosage: UNK, AS NEEDED

REACTIONS (6)
  - Dyspnoea [Not Recovered/Not Resolved]
  - Asthma [Not Recovered/Not Resolved]
  - Swelling [Not Recovered/Not Resolved]
  - Anger [Not Recovered/Not Resolved]
  - Mood swings [Not Recovered/Not Resolved]
  - Depression [Not Recovered/Not Resolved]
